FAERS Safety Report 19448552 (Version 1)
Quarter: 2021Q2

REPORT INFORMATION
  Report Type: Spontaneous
  Country: US (occurrence: US)
  Receive Date: 20210622
  Receipt Date: 20210622
  Transmission Date: 20210717
  Serious: No
  Sender: FDA-Public Use
  Company Number: ALC2020US008877

PATIENT

DRUGS (1)
  1. PATADAY TWICE A DAY RELIEF [Suspect]
     Active Substance: OLOPATADINE HYDROCHLORIDE
     Indication: EYE ALLERGY
     Dosage: BID, (STRENGTH: 0.1%/5ML)
     Route: 065

REACTIONS (4)
  - Eyelid irritation [Recovered/Resolved]
  - Product leakage [Unknown]
  - Product container seal issue [Unknown]
  - Skin irritation [Recovered/Resolved]
